FAERS Safety Report 4382245-2 (Version None)
Quarter: 2004Q2

REPORT INFORMATION
  Report Type: 
  Country: None (occurrence: None)
  Receive Date: 20040615
  Receipt Date: 20040312
  Transmission Date: 20050107
  Serious: Yes (Hospitalization)
  Sender: FDA-Public Use
  Company Number: 2004203390US

PATIENT
  Age: 55 Year
  Sex: Male
  Weight: 59 kg

DRUGS (7)
  1. CAMPTOSAR [Suspect]
     Indication: NON-SMALL CELL LUNG CANCER RECURRENT
     Dosage: 60 MG/M2, D1, D8 EVERY 21 DAYS, IV
     Route: 042
     Dates: start: 20030805
  2. CELEBREX [Suspect]
     Indication: NON-SMALL CELL LUNG CANCER RECURRENT
     Dosage: 400 MG, BID, ORAL
     Route: 048
     Dates: start: 20030805
  3. TAXOTERE [Suspect]
     Indication: NON-SMALL CELL LUNG CANCER RECURRENT
     Dosage: 35 MG/M2, D1, D8 EVERY 21 DAYS, IV
     Route: 042
     Dates: start: 20030805
  4. FLOVENT [Concomitant]
  5. SEREVENT [Concomitant]
  6. NICODERM [Concomitant]
  7. LOPERAMIDE HCL [Concomitant]

REACTIONS (5)
  - AORTIC VALVE INCOMPETENCE [None]
  - CARDIAC DISORDER [None]
  - CLOSTRIDIUM COLITIS [None]
  - HYPOTENSION [None]
  - PULMONARY HYPERTENSION [None]
